FAERS Safety Report 9163335 (Version 22)
Quarter: 2015Q3

REPORT INFORMATION
  Report Type: Spontaneous
  Country: CA (occurrence: CA)
  Receive Date: 20130314
  Receipt Date: 20150803
  Transmission Date: 20151125
  Serious: Yes (Hospitalization, Other)
  Sender: FDA-Public Use
  Company Number: CA-ROCHE-1200985

PATIENT
  Age: 40 Year
  Sex: Female

DRUGS (11)
  1. XOLAIR [Suspect]
     Active Substance: OMALIZUMAB
     Route: 058
     Dates: start: 20140207
  2. XOLAIR [Suspect]
     Active Substance: OMALIZUMAB
     Indication: ASTHMA
     Dosage: LAST DOSE AT 07/NOV/2013.
     Route: 058
     Dates: start: 20110815
  3. XOLAIR [Suspect]
     Active Substance: OMALIZUMAB
     Route: 058
     Dates: start: 20141211
  4. XOLAIR [Suspect]
     Active Substance: OMALIZUMAB
     Route: 058
     Dates: start: 20150205
  5. XOLAIR [Suspect]
     Active Substance: OMALIZUMAB
     Route: 058
     Dates: start: 20140401
  6. VENTOLIN [Concomitant]
     Active Substance: ALBUTEROL SULFATE
  7. ADVAIR HFA [Concomitant]
     Active Substance: FLUTICASONE PROPIONATE\SALMETEROL XINAFOATE
  8. SPIRIVA [Concomitant]
     Active Substance: TIOTROPIUM BROMIDE MONOHYDRATE
  9. XOLAIR [Suspect]
     Active Substance: OMALIZUMAB
     Route: 058
     Dates: start: 20140429
  10. XOLAIR [Suspect]
     Active Substance: OMALIZUMAB
     Route: 058
     Dates: start: 20141016
  11. XOLAIR [Suspect]
     Active Substance: OMALIZUMAB
     Route: 058
     Dates: start: 20150625

REACTIONS (23)
  - Emphysema [Unknown]
  - Hypokinesia [Unknown]
  - Lung disorder [Unknown]
  - Heart rate increased [Not Recovered/Not Resolved]
  - Epistaxis [Recovered/Resolved]
  - Wheezing [Unknown]
  - Morbid thoughts [Unknown]
  - Oxygen saturation decreased [Not Recovered/Not Resolved]
  - Malaise [Unknown]
  - Dizziness [Unknown]
  - Respiratory rate increased [Unknown]
  - Fall [Unknown]
  - Pelvic fracture [Unknown]
  - Bronchitis [Recovered/Resolved]
  - Blood pressure systolic increased [Not Recovered/Not Resolved]
  - Pneumonia [Unknown]
  - Lung infection [Unknown]
  - Dyspnoea at rest [Unknown]
  - Medical device discomfort [Unknown]
  - Rib fracture [Unknown]
  - Pallor [Unknown]
  - Oropharyngeal pain [Unknown]
  - Joint injury [Unknown]

NARRATIVE: CASE EVENT DATE: 20130223
